FAERS Safety Report 4615172-3 (Version None)
Quarter: 2005Q1

REPORT INFORMATION
  Report Type: 
  Country: None (occurrence: None)
  Receive Date: 20050322
  Receipt Date: 20050311
  Transmission Date: 20050727
  Serious: Yes (Hospitalization)
  Sender: FDA-Public Use
  Company Number: FR-GLAXOSMITHKLINE-B0375085A

PATIENT
  Age: 52 Year
  Sex: Male
  Weight: 72 kg

DRUGS (4)
  1. ZINNAT [Suspect]
     Indication: PNEUMONIA
     Dosage: 500MG TWICE PER DAY
     Route: 048
     Dates: start: 20050220, end: 20050222
  2. EFFERALGAN [Concomitant]
     Route: 065
  3. HEXAPNEUMINE [Concomitant]
     Route: 065
  4. NUREFLEX [Concomitant]
     Route: 065

REACTIONS (4)
  - ANGIONEUROTIC OEDEMA [None]
  - FACE OEDEMA [None]
  - HYPOTENSION [None]
  - OEDEMA PERIPHERAL [None]
